FAERS Safety Report 15971844 (Version 1)
Quarter: 2019Q1

REPORT INFORMATION
  Report Type: Spontaneous
  Country: US (occurrence: US)
  Receive Date: 20190215
  Receipt Date: 20190215
  Transmission Date: 20190418
  Serious: No
  Sender: FDA-Public Use
  Company Number: US-AMAG PHARMACEUTICALS, INC.-AMAG201804918

PATIENT
  Age: 32 Year
  Sex: Female
  Weight: 58.96 kg

DRUGS (1)
  1. MAKENA [Suspect]
     Active Substance: HYDROXYPROGESTERONE CAPROATE
     Indication: PREMATURE DELIVERY
     Dosage: 250 MG/ML, WEEKLY
     Route: 058
     Dates: start: 20180727

REACTIONS (7)
  - Pelvic discomfort [Unknown]
  - Abdominal discomfort [Unknown]
  - Injection site mass [Not Recovered/Not Resolved]
  - Inappropriate schedule of product administration [Unknown]
  - Dermatitis contact [Not Recovered/Not Resolved]
  - Injection site pruritus [Not Recovered/Not Resolved]
  - Injection site pain [Not Recovered/Not Resolved]

NARRATIVE: CASE EVENT DATE: 20180727
